FAERS Safety Report 12554601 (Version 1)
Quarter: 2016Q3

REPORT INFORMATION
  Report Type: Spontaneous
  Country: US (occurrence: US)
  Receive Date: 20160713
  Receipt Date: 20160713
  Transmission Date: 20161109
  Serious: Yes (Other)
  Sender: FDA-Public Use
  Company Number: US-SHIRE-US201608337

PATIENT
  Sex: Female

DRUGS (1)
  1. LIALDA [Suspect]
     Active Substance: MESALAMINE
     Indication: PROCTITIS ULCERATIVE
     Dosage: 4.8 G (FOUR 1.2 G  TABLETS), 1X/DAY:QD
     Route: 048

REACTIONS (2)
  - Haemorrhage [Recovered/Resolved]
  - Product use issue [Not Recovered/Not Resolved]
